FAERS Safety Report 8638606 (Version 3)
Quarter: 2012Q4

REPORT INFORMATION
  Report Type: 
  Country: US (occurrence: US)
  Receive Date: 20120627
  Receipt Date: 20121120
  Transmission Date: 20130627
  Serious: Yes (Hospitalization, Disabling)
  Sender: FDA-Public Use
  Company Number: US-BAYER-2012-062901

PATIENT
  Age: 18 Year
  Sex: Female
  Weight: 54.42 kg

DRUGS (5)
  1. YASMIN [Suspect]
     Indication: MENSTRUAL CYCLE MANAGEMENT
     Dosage: UNK
     Dates: start: 2005, end: 2010
  2. YASMIN [Suspect]
     Indication: BIRTH CONTROL
  3. OCELLA [Suspect]
     Dosage: UNK
     Dates: start: 2005, end: 2010
  4. TRAZODONE [Concomitant]
     Dosage: 100 mg, UNK
  5. FLUOXETINE [Concomitant]
     Dosage: 90 mg, UNK

REACTIONS (6)
  - Pulmonary embolism [None]
  - Injury [None]
  - Pain [None]
  - Deformity [None]
  - Anxiety [None]
  - Anhedonia [None]
